FAERS Safety Report 4895173-0 (Version None)
Quarter: 2006Q1

REPORT INFORMATION
  Report Type: 
  Country: None (occurrence: None)
  Receive Date: 20060124
  Receipt Date: 20060112
  Transmission Date: 20060701
  Serious: Yes (Hospitalization)
  Sender: FDA-Public Use
  Company Number: 2006007881

PATIENT
  Age: 78 Year
  Sex: Male

DRUGS (9)
  1. SPIRONOLACTONE [Suspect]
     Indication: ILL-DEFINED DISORDER
     Dosage: 12.5 MG (12.5 MG, DAILY), ORAL
     Route: 048
  2. COVERSYL (PERINDOPRIL) [Suspect]
     Indication: ILL-DEFINED DISORDER
     Dosage: 1 MG (1 MG, QD), ORAL
     Route: 048
  3. BUMETANIDE [Suspect]
     Indication: ILL-DEFINED DISORDER
     Dosage: 2 MG (2 MG, DAILY), ORAL
     Route: 048
  4. ATENOLOL [Concomitant]
  5. SIMVASTATIN [Concomitant]
  6. ASPIRIN [Concomitant]
  7. ACENOCOUMAROL (ACENOCOUMAROL) [Concomitant]
  8. DIGOXIN [Concomitant]
  9. DUTASTERIDE (DUTASTERIDE) [Concomitant]

REACTIONS (7)
  - ANAEMIA [None]
  - BLOOD PRESSURE DIASTOLIC DECREASED [None]
  - DYSPNOEA [None]
  - FAECES DISCOLOURED [None]
  - HEART RATE IRREGULAR [None]
  - HYPERKALAEMIA [None]
  - RENAL IMPAIRMENT [None]
